FAERS Safety Report 14231668 (Version 3)
Quarter: 2018Q1

REPORT INFORMATION
  Report Type: Spontaneous
  Country: US (occurrence: US)
  Receive Date: 20171128
  Receipt Date: 20180123
  Transmission Date: 20180508
  Serious: No
  Sender: FDA-Public Use
  Company Number: US-GLAXOSMITHKLINE-US2017GSK181096

PATIENT
  Age: 74 Year
  Sex: Female

DRUGS (2)
  1. LOSARTAN POTASSIUM. [Concomitant]
     Active Substance: LOSARTAN POTASSIUM
  2. ADVAIR DISKUS [Suspect]
     Active Substance: FLUTICASONE PROPIONATE\SALMETEROL XINAFOATE
     Indication: ASTHMA
     Dosage: 1 PUFF(S), BID

REACTIONS (5)
  - Respiratory tract irritation [Not Recovered/Not Resolved]
  - Pain [Not Recovered/Not Resolved]
  - Upper respiratory tract infection [Not Recovered/Not Resolved]
  - Intentional underdose [Unknown]
  - Product quality issue [Unknown]

NARRATIVE: CASE EVENT DATE: 20171024
